FAERS Safety Report 11925894 (Version 2)
Quarter: 2016Q1

REPORT INFORMATION
  Report Type: Spontaneous
  Country: IT (occurrence: IT)
  Receive Date: 20160119
  Receipt Date: 20160328
  Transmission Date: 20160526
  Serious: Yes (Hospitalization)
  Sender: FDA-Public Use
  Company Number: IT-BRISTOL-MYERS SQUIBB COMPANY-BMS-2016-000003

PATIENT
  Age: 84 Year
  Sex: Male

DRUGS (1)
  1. COUMADIN [Suspect]
     Active Substance: WARFARIN SODIUM
     Indication: PRODUCT USED FOR UNKNOWN INDICATION
     Dosage: 5 MG, QD
     Route: 048

REACTIONS (4)
  - Fracture [Recovering/Resolving]
  - Pelvic fracture [Recovering/Resolving]
  - Pubis fracture [Recovering/Resolving]
  - Effusion [Recovering/Resolving]

NARRATIVE: CASE EVENT DATE: 20151206
